FAERS Safety Report 7002860-7 (Version None)
Quarter: 2010Q3

REPORT INFORMATION
  Report Type: 
  Country: None (occurrence: None)
  Receive Date: 20100920
  Receipt Date: 20100519
  Transmission Date: 20110219
  Serious: No
  Sender: FDA-Public Use
  Company Number: US-ASTRAZENECA-2010SE14198

PATIENT
  Age: 50 Year
  Sex: Female
  Weight: 70.8 kg

DRUGS (6)
  1. SEROQUEL [Suspect]
     Indication: SUICIDAL IDEATION
     Dosage: 200 MG IN THE MORNING AND 400 MG AT NIGHT
     Route: 048
     Dates: start: 20090601, end: 20100330
  2. FIORICET [Concomitant]
  3. COSAR [Concomitant]
  4. TRAVATAN [Concomitant]
  5. WELLBUTRIN [Concomitant]
  6. PROZAC [Concomitant]

REACTIONS (3)
  - DRUG DOSE OMISSION [None]
  - TREMOR [None]
  - WITHDRAWAL SYNDROME [None]
